FAERS Safety Report 7348463-6 (Version None)
Quarter: 2011Q1

REPORT INFORMATION
  Report Type: 
  Country: None (occurrence: None)
  Receive Date: 20110314
  Receipt Date: 20110301
  Transmission Date: 20110831
  Serious: Yes (Congenital Anomaly)
  Sender: FDA-Public Use
  Company Number: US-AMGEN-USACT2011011618

PATIENT
  Age: 16 Day
  Weight: 3.562 kg

DRUGS (21)
  1. ETANERCEPT [Suspect]
     Dosage: 50 MG, QWK
     Route: 064
     Dates: start: 20100222, end: 20101020
  2. MELOXICAM [Concomitant]
     Dosage: 15 MG, UNK
     Route: 064
     Dates: start: 20100222, end: 20100615
  3. PREDNISONE [Concomitant]
     Dosage: UNK UNK, QD
     Route: 064
     Dates: start: 20100222, end: 20101124
  4. HYDROXYCHLOROQUINE [Concomitant]
     Dosage: 200 MG, QD
     Route: 064
     Dates: start: 20100222, end: 20101124
  5. PREVACID [Concomitant]
     Dosage: 30 MG, QD
     Route: 064
     Dates: start: 20100222, end: 20100621
  6. TYLENOL PM EXTRA STRENGTH [Concomitant]
     Dosage: UNK UNK, PRN
     Route: 064
     Dates: start: 20100222, end: 20101124
  7. SUDAFED 12 HOUR [Concomitant]
     Dosage: UNK UNK, QD
     Route: 064
     Dates: start: 20100401, end: 20100630
  8. HYDROCODONE [Concomitant]
     Dosage: 25 MG, PRN
     Route: 064
     Dates: start: 20100222, end: 20101124
  9. ASCORBIC ACID [Concomitant]
     Dosage: UNK UNK, QD
     Route: 064
     Dates: start: 20100106, end: 20101124
  10. PERTUSSIS VAC [Concomitant]
     Dosage: UNK
     Route: 064
     Dates: start: 20100924, end: 20100924
  11. LORAZEPAM [Concomitant]
     Dosage: 0.5 MG, PRN
     Route: 064
     Dates: start: 20100222, end: 20100331
  12. LABETALOL HCL [Concomitant]
     Dosage: UNK UNK, QD
     Route: 064
     Dates: start: 20100505, end: 20101124
  13. PRENATAL VITAMINS [Concomitant]
     Dosage: UNK UNK, QD
     Route: 064
     Dates: start: 20100222, end: 20101124
  14. AMLODIPINE [Concomitant]
     Dosage: 10 MG, QD
     Route: 064
     Dates: start: 20100222, end: 20100504
  15. LORATADINE [Concomitant]
     Dosage: UNK UNK, QD
     Route: 064
     Dates: start: 20100222, end: 20101124
  16. IRON [Concomitant]
     Dosage: UNK UNK, QD
     Route: 064
     Dates: start: 20100601, end: 20100801
  17. DIFLUCAN [Concomitant]
     Dosage: UNK
     Route: 064
     Dates: start: 20100519, end: 20100730
  18. FOLIC ACID [Concomitant]
     Dosage: 1 MG, QD
     Route: 064
     Dates: start: 20100222, end: 20101124
  19. FLEXERIL [Concomitant]
     Dosage: 10 MG, PRN
     Route: 064
     Dates: start: 20100222, end: 20100430
  20. NEXIUM [Concomitant]
     Dosage: UNK UNK, QD
     Dates: start: 20100622, end: 20101124
  21. FLUVIRIN [Concomitant]
     Dosage: UNK
     Route: 064
     Dates: start: 20101109, end: 20101109

REACTIONS (1)
  - CONGENITAL CYSTIC KIDNEY DISEASE [None]
